FAERS Safety Report 17489128 (Version 1)
Quarter: 2020Q1

REPORT INFORMATION
  Report Type: Spontaneous
  Country: US (occurrence: US)
  Receive Date: 20200303
  Receipt Date: 20200303
  Transmission Date: 20200409
  Serious: Yes (Life-Threatening, Other)
  Sender: FDA-Public Use
  Company Number: None

PATIENT
  Age: 66 Year
  Sex: Male
  Weight: 85.4 kg

DRUGS (2)
  1. OPDIVO [Suspect]
     Active Substance: NIVOLUMAB
     Indication: RENAL CELL CARCINOMA
     Route: 041
     Dates: start: 20200225
  2. IPILIMUMAB [Suspect]
     Active Substance: IPILIMUMAB
     Indication: RENAL CELL CARCINOMA
     Route: 041

REACTIONS (6)
  - Confusional state [None]
  - Multiple organ dysfunction syndrome [None]
  - Cardiogenic shock [None]
  - Pericarditis [None]
  - Myocarditis [None]
  - Influenza [None]

NARRATIVE: CASE EVENT DATE: 20200301
